FAERS Safety Report 18393274 (Version 2)
Quarter: 2020Q4

REPORT INFORMATION
  Report Type: Spontaneous
  Country: US (occurrence: US)
  Receive Date: 20201016
  Receipt Date: 20201123
  Transmission Date: 20210114
  Serious: Yes (Death, Other)
  Sender: FDA-Public Use
  Company Number: US-GILEAD-2020-0499400

PATIENT
  Age: 81 Year
  Sex: Male
  Weight: 85.6 kg

DRUGS (25)
  1. PYRIDOXINE [Concomitant]
     Active Substance: PYRIDOXINE
     Indication: VITAMIN SUPPLEMENTATION
     Dosage: 50 MG, QD
     Route: 048
     Dates: start: 20200822, end: 20200901
  2. CEFAZOLIN [Concomitant]
     Active Substance: CEFAZOLIN
     Indication: BACTERAEMIA
  3. TAMSULOSIN [Concomitant]
     Active Substance: TAMSULOSIN
     Indication: POLLAKIURIA
     Dosage: 0.4 MG, QD
     Route: 048
     Dates: start: 20200829, end: 20200901
  4. DEXAMETHASONE. [Concomitant]
     Active Substance: DEXAMETHASONE
     Dosage: 6 MG, QD
     Route: 042
     Dates: start: 20200822, end: 20200827
  5. INSULIN ASPART [Concomitant]
     Active Substance: INSULIN ASPART
     Indication: HYPERGLYCAEMIA
     Dosage: UNK, PRN
     Route: 058
     Dates: start: 20200818, end: 20200901
  6. ACETAMINOPHEN. [Concomitant]
     Active Substance: ACETAMINOPHEN
     Indication: PAIN
     Dosage: 650 MG, PRN
     Route: 048
     Dates: end: 20200901
  7. ACETAMINOPHEN. [Concomitant]
     Active Substance: ACETAMINOPHEN
     Indication: PYREXIA
  8. CEFTAROLINE [Concomitant]
     Active Substance: CEFTAROLINE
     Dosage: 400 MG, BID
     Route: 042
     Dates: start: 20200821, end: 20200825
  9. HYDROMORPHONE [Concomitant]
     Active Substance: HYDROMORPHONE
     Dosage: 0.2 MG, PRN
     Route: 042
     Dates: start: 20200822, end: 20200829
  10. ONDANSETRON [Concomitant]
     Active Substance: ONDANSETRON
     Indication: NAUSEA
     Dosage: 4 MG, PRN
     Route: 042
     Dates: start: 20200818, end: 20200901
  11. ASPIRIN 81 [Concomitant]
     Active Substance: ASPIRIN
     Dosage: 81 MG, QD
     Route: 048
     Dates: end: 20200901
  12. CARVEDILOL. [Concomitant]
     Active Substance: CARVEDILOL
     Indication: HYPERTENSION
     Dosage: 6.25 MG, BID
     Route: 048
     Dates: end: 20200901
  13. VANCOMYCIN [Concomitant]
     Active Substance: VANCOMYCIN
     Dosage: 1500 MG, QD
     Route: 042
     Dates: start: 20200819, end: 20200821
  14. FERROUS SULFATE. [Concomitant]
     Active Substance: FERROUS SULFATE
     Indication: MINERAL SUPPLEMENTATION
     Dosage: 325 MG, QD
     Route: 048
     Dates: start: 20200828, end: 20200901
  15. REMDESIVIR. [Suspect]
     Active Substance: REMDESIVIR
     Dosage: 100 MG, QD
     Route: 042
     Dates: start: 20200822, end: 20200825
  16. ALBUTEROL [SALBUTAMOL] [Concomitant]
     Active Substance: ALBUTEROL
     Indication: DYSPNOEA
     Dosage: 2 DOSAGE FORM, PRN
     Route: 055
     Dates: end: 20200901
  17. ENOXAPARIN [Concomitant]
     Active Substance: ENOXAPARIN
     Dosage: 40 MG, QD
     Route: 058
     Dates: start: 20200818, end: 20200828
  18. HALOPERIDOL LACTATE. [Concomitant]
     Active Substance: HALOPERIDOL LACTATE
     Indication: PSYCHOTIC DISORDER
     Dosage: 2 MG, PRN
     Route: 030
     Dates: start: 20200822, end: 20200901
  19. ONDANSETRON [Concomitant]
     Active Substance: ONDANSETRON
     Indication: VOMITING
  20. CLOPIDOGREL [Concomitant]
     Active Substance: CLOPIDOGREL BISULFATE
     Dosage: 75 MG, QD
     Route: 048
     Dates: end: 20200901
  21. NYSTATIN. [Concomitant]
     Active Substance: NYSTATIN
     Indication: ORAL CANDIDIASIS
     Dosage: 500,000 UNITS, TID
     Route: 048
     Dates: start: 20200828, end: 20200901
  22. REMDESIVIR. [Suspect]
     Active Substance: REMDESIVIR
     Indication: COVID-19 PNEUMONIA
     Dosage: 200 MG, ONCE
     Route: 042
     Dates: start: 20200821, end: 20200821
  23. CEFAZOLIN [Concomitant]
     Active Substance: CEFAZOLIN
     Indication: PNEUMONIA
     Dosage: 2 G, Q8H
     Route: 042
     Dates: start: 20200825, end: 20200901
  24. LEVOTHYROXINE. [Concomitant]
     Active Substance: LEVOTHYROXINE
     Indication: HYPOTHYROIDISM
     Dosage: 50 MCG
     Route: 048
     Dates: start: 20200829, end: 20200901
  25. LORAZEPAM. [Concomitant]
     Active Substance: LORAZEPAM
     Indication: ANXIETY
     Dosage: UNK, PRN
     Route: 042
     Dates: start: 20200829, end: 20200901

REACTIONS (3)
  - Cardio-respiratory arrest [Fatal]
  - Death [Fatal]
  - Respiratory disorder [Fatal]

NARRATIVE: CASE EVENT DATE: 20200831
